FAERS Safety Report 18322976 (Version 1)
Quarter: 2020Q3

REPORT INFORMATION
  Report Type: Spontaneous
  Country: US (occurrence: US)
  Receive Date: 20200928
  Receipt Date: 20200928
  Transmission Date: 20201103
  Serious: Yes (Other)
  Sender: FDA-Public Use
  Company Number: US-ENDO PHARMACEUTICALS INC-2020-006426

PATIENT
  Sex: Female

DRUGS (6)
  1. OPIOID ANESTHETICS [Concomitant]
     Active Substance: UNSPECIFIED INGREDIENT
     Indication: ANAESTHETIC PREMEDICATION
     Dosage: UNK UNKNOWN, UNKNOWN
     Route: 065
  2. PHENYLEPHRINE [Concomitant]
     Active Substance: PHENYLEPHRINE HYDROCHLORIDE
     Indication: PREMEDICATION
     Dosage: UNK UNKNOWN, UNKNOWN
     Route: 065
  3. TROPICAMIDE. [Concomitant]
     Active Substance: TROPICAMIDE
     Indication: PREMEDICATION
     Dosage: UNK UNKNOWN, UNKNOWN
     Route: 065
  4. ANESTHETICS FOR TOPICAL USE [Concomitant]
     Indication: ANAESTHETIC PREMEDICATION
     Dosage: UNK UNKNOWN, UNKNOWN
     Route: 061
  5. CYCLOPENTOLATE. [Concomitant]
     Active Substance: CYCLOPENTOLATE
     Indication: PREMEDICATION
     Dosage: UNK UNKNOWN, UNKNOWN
     Route: 065
  6. DEXMEDETOMIDINE HYDROCHLORIDE. [Suspect]
     Active Substance: DEXMEDETOMIDINE HYDROCHLORIDE
     Indication: SEDATIVE THERAPY
     Dosage: UNK UNKNOWN, SINGLE
     Route: 042

REACTIONS (1)
  - Floppy iris syndrome [Recovered/Resolved]
